FAERS Safety Report 15417593 (Version 1)
Quarter: 2018Q4

REPORT INFORMATION
  Report Type: Spontaneous
  Country: IL (occurrence: IL)
  Receive Date: 20180924
  Receipt Date: 20180924
  Transmission Date: 20190204
  Serious: Yes (Hospitalization)
  Sender: FDA-Public Use
  Company Number: IL-TEVA-2018-IL-957750

PATIENT
  Age: 30 Year
  Sex: Male

DRUGS (3)
  1. FINASTERID TEVA [Suspect]
     Active Substance: FINASTERIDE
     Dosage: 1*1
     Dates: start: 20180722
  2. RELVAR ELLIPTA 184 [Concomitant]
  3. RITALIN 10 MG [Concomitant]

REACTIONS (3)
  - Abdominal pain [Unknown]
  - Pancreatitis acute [Unknown]
  - Nausea [Unknown]
